FAERS Safety Report 21247609 (Version 2)
Quarter: 2022Q3

REPORT INFORMATION
  Report Type: Spontaneous
  Country: CN (occurrence: CN)
  Receive Date: 20220824
  Receipt Date: 20220825
  Transmission Date: 20221027
  Serious: Yes (Hospitalization)
  Sender: FDA-Public Use
  Company Number: CN-JNJFOC-20220841210

PATIENT

DRUGS (1)
  1. CHILDRENS MOTRIN [Suspect]
     Active Substance: IBUPROFEN
     Indication: Pyrexia
     Route: 065

REACTIONS (4)
  - Gastrointestinal mucosal disorder [Recovered/Resolved]
  - Product administered to patient of inappropriate age [Recovered/Resolved]
  - Haematemesis [Recovered/Resolved]
  - Occult blood positive [Recovered/Resolved]
